FAERS Safety Report 12292090 (Version 1)
Quarter: 2016Q2

REPORT INFORMATION
  Report Type: Report from Study
  Country: US (occurrence: US)
  Receive Date: 20160421
  Receipt Date: 20160421
  Transmission Date: 20160815
  Serious: No
  Sender: FDA-Public Use
  Company Number: US-AMGEN-USASL2016040679

PATIENT
  Age: 71 Year
  Sex: Female

DRUGS (1)
  1. REPATHA [Suspect]
     Active Substance: EVOLOCUMAB
     Indication: PRODUCT USED FOR UNKNOWN INDICATION
     Dosage: UNK
     Route: 065

REACTIONS (8)
  - Rash papular [Unknown]
  - Rash pruritic [Unknown]
  - Rash pustular [Unknown]
  - Dry skin [Unknown]
  - Abdominal discomfort [Unknown]
  - Back pain [Unknown]
  - Skin exfoliation [Unknown]
  - Scab [Unknown]
